FAERS Safety Report 19568471 (Version 3)
Quarter: 2021Q4

REPORT INFORMATION
  Report Type: Other
  Country: BE (occurrence: BE)
  Receive Date: 20210716
  Receipt Date: 20211018
  Transmission Date: 20220303
  Serious: Yes (Death)
  Sender: FDA-Public Use
  Company Number: BE-PFIZER INC-2021777629

PATIENT
  Age: 58 Year
  Sex: Male

DRUGS (4)
  1. CYCLOPHOSPHAMIDE [Suspect]
     Active Substance: CYCLOPHOSPHAMIDE
     Indication: Paraneoplastic neurological syndrome
     Route: 042
  2. CYCLOPHOSPHAMIDE [Suspect]
     Active Substance: CYCLOPHOSPHAMIDE
     Indication: Encephalitis brain stem
  3. RITUXIMAB [Suspect]
     Active Substance: RITUXIMAB
     Indication: Encephalitis brain stem
     Route: 065
  4. RITUXIMAB [Suspect]
     Active Substance: RITUXIMAB
     Indication: Paraneoplastic neurological syndrome

REACTIONS (1)
  - Off label use [Fatal]
